FAERS Safety Report 8801289 (Version 2)
Quarter: 2013Q2

REPORT INFORMATION
  Report Type: Spontaneous
  Country: FR (occurrence: FR)
  Receive Date: 20120920
  Receipt Date: 20130619
  Transmission Date: 20140414
  Serious: Yes (Hospitalization)
  Sender: FDA-Public Use
  Company Number: FR-UCBSA-060224

PATIENT
  Age: 33 Year
  Sex: Female

DRUGS (13)
  1. CIMZIA [Suspect]
     Indication: RHEUMATOID ARTHRITIS
     Dosage: 200 MG
     Route: 058
     Dates: end: 2012
  2. CIMZIA [Suspect]
     Indication: RHEUMATOID ARTHRITIS
     Dosage: 400 MG
     Route: 058
     Dates: start: 201112
  3. METOJECT [Concomitant]
     Indication: RHEUMATOID ARTHRITIS
     Dosage: REDUCED TO 10 MG WEEKLY
     Dates: end: 20120525
  4. METOJECT [Concomitant]
     Indication: RHEUMATOID ARTHRITIS
     Dosage: INCREASED TO 20 MG WEEKLY
  5. METOJECT [Concomitant]
     Indication: RHEUMATOID ARTHRITIS
     Dosage: 10 MG
     Dates: start: 201012
  6. CORTANCYL [Concomitant]
     Dosage: 20 MG FOR 2 MONTHS
  7. CORTANCYL [Concomitant]
     Dosage: MORNING
  8. CORTANCYL [Concomitant]
  9. DOLIPRANE [Concomitant]
  10. DOLIPRANE [Concomitant]
  11. TRAMADOL [Concomitant]
  12. SPECIAFOLDINE [Concomitant]
     Dosage: 5 MG,10 MG WEEKLY
  13. MOPRAL [Concomitant]
     Dosage: 40 MG IN THE MORNING

REACTIONS (4)
  - Lymphocyte count increased [Unknown]
  - Transaminases increased [Unknown]
  - Leukocytosis [Unknown]
  - Pain [Not Recovered/Not Resolved]
